FAERS Safety Report 20605699 (Version 1)
Quarter: 2022Q1

REPORT INFORMATION
  Report Type: Report from Study
  Country: IT (occurrence: IT)
  Receive Date: 20220317
  Receipt Date: 20220317
  Transmission Date: 20220423
  Serious: Yes (Hospitalization)
  Sender: FDA-Public Use
  Company Number: None

PATIENT
  Age: 31 Year
  Sex: Female
  Weight: 60 kg

DRUGS (1)
  1. PACLITAXEL [Suspect]
     Active Substance: PACLITAXEL
     Indication: Angiosarcoma
     Dosage: PACLITAXEL TEVA ITALIA,UNIT DOSE :80MG/M2
     Route: 065
     Dates: start: 20211115

REACTIONS (6)
  - Nephrolithiasis [Recovered/Resolved]
  - Flank pain [Recovered/Resolved]
  - Pyrexia [Recovered/Resolved]
  - Hydronephrosis [Recovered/Resolved]
  - Renal colic [Recovered/Resolved]
  - Urinary tract infection [Recovered/Resolved]

NARRATIVE: CASE EVENT DATE: 20220202
